FAERS Safety Report 11920019 (Version 1)
Quarter: 2016Q1

REPORT INFORMATION
  Report Type: Spontaneous
  Country: US (occurrence: None)
  Receive Date: 20160114
  Receipt Date: 20160114
  Transmission Date: 20160526
  Serious: No
  Sender: FDA-Public Use
  Company Number: None

PATIENT
  Age: 29 Year
  Sex: Female

DRUGS (1)
  1. TECFIDERA [Suspect]
     Active Substance: DIMETHYL FUMARATE
     Indication: MULTIPLE SCLEROSIS
     Dosage: 240 MG CAPSULE 1 CAPSULE TWICE DAILY PO
     Route: 048
     Dates: start: 20150511

REACTIONS (3)
  - Depression [None]
  - Mood swings [None]
  - Anxiety [None]

NARRATIVE: CASE EVENT DATE: 201505
